FAERS Safety Report 25731921 (Version 1)
Quarter: 2025Q3

REPORT INFORMATION
  Report Type: Spontaneous
  Country: US (occurrence: US)
  Receive Date: 20250827
  Receipt Date: 20250827
  Transmission Date: 20251021
  Serious: No
  Sender: GENBIOPRO
  Company Number: US-GENBIOPRO-2025GEN00001

PATIENT
  Age: 39 Year
  Sex: Female

DRUGS (2)
  1. MISOPROSTOL [Suspect]
     Active Substance: MISOPROSTOL
     Indication: Abortion
     Route: 002
     Dates: start: 20250117, end: 20250117
  2. MIFEPRISTONE [Concomitant]
     Active Substance: MIFEPRISTONE
     Route: 048
     Dates: start: 20250116, end: 20250116

REACTIONS (1)
  - Oropharyngeal pain [Recovered/Resolved]

NARRATIVE: CASE EVENT DATE: 20250117
